FAERS Safety Report 22320133 (Version 1)
Quarter: 2023Q2

REPORT INFORMATION
  Report Type: Spontaneous
  Country: AU (occurrence: AU)
  Receive Date: 20230515
  Receipt Date: 20230515
  Transmission Date: 20230721
  Serious: Yes (Hospitalization)
  Sender: FDA-Public Use
  Company Number: AU-GE HEALTHCARE-2023CSU003610

PATIENT
  Age: 38 Year
  Sex: Female
  Weight: 80 kg

DRUGS (2)
  1. OMNIPAQUE [Suspect]
     Active Substance: IOHEXOL
     Indication: Computerised tomogram abdomen
     Dosage: 70 ML AT 2.5 ML/ SEC (ALSO REPORTED AS 3 ML/ SEC) VIA 23-GAUGE IN THE LEFT ANTECUBITAL FOSSA, ONCE
     Route: 042
     Dates: start: 20230508, end: 20230508
  2. OMNIPAQUE [Suspect]
     Active Substance: IOHEXOL
     Indication: Product used for unknown indication

REACTIONS (3)
  - Sneezing [Recovered/Resolved]
  - Wheezing [Recovered/Resolved]
  - Nausea [Recovered/Resolved]

NARRATIVE: CASE EVENT DATE: 20230508
